FAERS Safety Report 9779214 (Version 2)
Quarter: 2014Q1

REPORT INFORMATION
  Report Type: Spontaneous
  Country: US (occurrence: US)
  Receive Date: 20131223
  Receipt Date: 20140312
  Transmission Date: 20141002
  Serious: Yes (Other)
  Sender: FDA-Public Use
  Company Number: US-ENDO PHARMACEUTICALS INC.-OPCR20130410

PATIENT
  Age: 52 Year
  Sex: Female

DRUGS (1)
  1. OPANA ER 40MG [Suspect]
     Indication: PAIN
     Route: 048

REACTIONS (3)
  - Fall [Recovered/Resolved]
  - Sciatica [Not Recovered/Not Resolved]
  - Drug ineffective [Not Recovered/Not Resolved]
